FAERS Safety Report 10724257 (Version 3)
Quarter: 2017Q4

REPORT INFORMATION
  Report Type: Report from Study
  Country: US (occurrence: US)
  Receive Date: 20150120
  Receipt Date: 20171016
  Transmission Date: 20180320
  Serious: Yes (Hospitalization)
  Sender: FDA-Public Use
  Company Number: US-BIOMARINAP-US-2015-105243

PATIENT
  Age: 27 Year
  Sex: Female
  Weight: 150.7 kg

DRUGS (5)
  1. KUVAN [Suspect]
     Active Substance: SAPROPTERIN DIHYDROCHLORIDE
     Indication: PHENYLKETONURIA
     Dosage: 17.9 MG/KG, QD
     Route: 048
     Dates: start: 20130117
  2. LANSOPRAZOLE. [Suspect]
     Active Substance: LANSOPRAZOLE
     Indication: PSYCHIATRIC SYMPTOM
     Dosage: 30 MG, BID
     Route: 048
     Dates: end: 20150105
  3. XANAX [Suspect]
     Active Substance: ALPRAZOLAM
     Indication: ANXIETY
     Dosage: 0.5 MG, TID
     Dates: start: 201404, end: 20150105
  4. PRAZOSIN HCL [Suspect]
     Active Substance: PRAZOSIN HYDROCHLORIDE
     Indication: PSYCHIATRIC SYMPTOM
     Dosage: 1 MG, QD
     Route: 048
     Dates: end: 20150105
  5. SERTRALINE [Suspect]
     Active Substance: SERTRALINE HYDROCHLORIDE
     Indication: PSYCHIATRIC SYMPTOM
     Dosage: 100 MG, QD
     Dates: end: 20170105

REACTIONS (1)
  - Drug dependence [Recovered/Resolved]

NARRATIVE: CASE EVENT DATE: 20150112
